FAERS Safety Report 6922939-5 (Version None)
Quarter: 2010Q3

REPORT INFORMATION
  Report Type: 
  Country: None (occurrence: None)
  Receive Date: 20100813
  Receipt Date: 20100810
  Transmission Date: 20110219
  Serious: Yes (Death, Life-Threatening, Hospitalization, Other)
  Sender: FDA-Public Use
  Company Number: PHHY2010JP39664

PATIENT
  Sex: Male
  Weight: 63 kg

DRUGS (31)
  1. AFINITOR [Suspect]
     Indication: METASTATIC RENAL CELL CARCINOMA
     Dosage: 10 MG/DAY
     Route: 048
     Dates: start: 20100514, end: 20100627
  2. OXYCONTIN [Concomitant]
     Indication: METASTATIC RENAL CELL CARCINOMA
     Dosage: 60 MG
     Route: 048
     Dates: end: 20100705
  3. GABAPENTIN [Concomitant]
     Indication: METASTATIC RENAL CELL CARCINOMA
     Dosage: 400 MG
     Route: 048
     Dates: end: 20100706
  4. ZOMETA [Concomitant]
     Indication: METASTASES TO BONE
     Dosage: 4 MG
     Route: 042
     Dates: start: 20100507, end: 20100702
  5. RISPERDAL [Concomitant]
     Indication: DELIRIUM
     Dosage: 0.5 MG
     Route: 048
     Dates: end: 20100706
  6. CALONAL [Concomitant]
     Indication: METASTATIC RENAL CELL CARCINOMA
     Dosage: 400 MG
     Route: 048
     Dates: end: 20100703
  7. MAGMITT [Concomitant]
     Indication: PROPHYLAXIS
     Dosage: 1500 MG, UNK
     Route: 048
     Dates: end: 20100706
  8. OXINORM [Concomitant]
     Indication: METASTATIC RENAL CELL CARCINOMA
     Dosage: 2.5 MG
     Route: 048
     Dates: end: 20100706
  9. NOVAMIN [Concomitant]
     Indication: PROPHYLAXIS
     Dosage: 10 MG
     Route: 048
     Dates: end: 20100706
  10. EURAX [Concomitant]
     Indication: ECZEMA ASTEATOTIC
     Route: 062
  11. HIRUDOID [Concomitant]
     Indication: ECZEMA ASTEATOTIC
     Dosage: UNK
     Route: 062
     Dates: start: 20100521, end: 20100604
  12. MYSER [Concomitant]
     Indication: ECZEMA ASTEATOTIC
     Dosage: UNK
     Route: 062
     Dates: start: 20100521, end: 20100604
  13. AZUNOL [Concomitant]
     Indication: STOMATITIS
     Dosage: UNK
     Dates: start: 20100522, end: 20100604
  14. SLOW-K [Concomitant]
     Dosage: 1200 MG, UNK
     Route: 062
     Dates: start: 20100706, end: 20100708
  15. DEXALTIN [Concomitant]
     Indication: STOMATITIS
     Dosage: UNK
     Route: 062
     Dates: start: 20100523, end: 20100604
  16. MYSLEE [Concomitant]
     Indication: INSOMNIA
     Dosage: 5 MG, UNK
     Route: 048
     Dates: end: 20100705
  17. EURODIN [Concomitant]
     Dosage: 2 MG, UNK
     Route: 048
     Dates: start: 20100618, end: 20100702
  18. VASOLAN [Concomitant]
     Dosage: 120 MG, UNK
     Dates: start: 20100622, end: 20100704
  19. DIGOXIN [Concomitant]
     Dosage: 0.125 MG, UNK
     Route: 048
     Dates: start: 20100622, end: 20100704
  20. DECADRON [Concomitant]
     Dosage: 1 MG, UNK
     Route: 048
     Dates: start: 20100622, end: 20100702
  21. CEFEPIME HYDROCHLORIDE [Concomitant]
     Dosage: 3 G, UNK
     Route: 042
     Dates: start: 20100703, end: 20100708
  22. ROPION [Concomitant]
     Indication: METASTATIC RENAL CELL CARCINOMA
     Dosage: 100 MG, UNK
     Route: 042
     Dates: start: 20100704, end: 20100705
  23. SOL-MELCORT [Concomitant]
     Dosage: 1000 MG, UNK
     Route: 042
     Dates: start: 20100705, end: 20100708
  24. GASTER [Concomitant]
     Indication: PROPHYLAXIS
     Dosage: 20 MG, UNK
     Route: 042
     Dates: start: 20100705, end: 20100708
  25. OMEPRAL [Concomitant]
     Indication: PROPHYLAXIS
     Dosage: 20 MG, UNK
     Route: 042
     Dates: start: 20100709, end: 20100710
  26. DUROTEP JANSSEN [Concomitant]
     Indication: METASTATIC RENAL CELL CARCINOMA
     Dosage: 2.1 MG, UNK
     Route: 062
     Dates: start: 20100706, end: 20100710
  27. ATARAX [Concomitant]
     Dosage: 12.5 MG, UNK
     Route: 042
     Dates: start: 20100707, end: 20100708
  28. INOVAN [Concomitant]
     Dosage: 86.4 ML, UNK
     Dates: start: 20100708, end: 20100709
  29. CIPROFLOXACIN HCL [Concomitant]
     Dosage: 600 MG, UNK
     Route: 042
     Dates: start: 20100708, end: 20100710
  30. BACTRAMIN [Concomitant]
     Dosage: 30 MG, UNK
     Route: 042
     Dates: start: 20100708, end: 20100710
  31. PREDONINE [Concomitant]
     Dosage: 60 MG, UNK
     Route: 042
     Dates: start: 20100708, end: 20100710

REACTIONS (13)
  - ANAEMIA [None]
  - BLOOD BETA-D-GLUCAN INCREASED [None]
  - BLOOD CREATININE INCREASED [None]
  - DRUG INEFFECTIVE [None]
  - GENERALISED OEDEMA [None]
  - HAEMOGLOBIN DECREASED [None]
  - HYPOTENSION [None]
  - INTERSTITIAL LUNG DISEASE [None]
  - LYMPHOCYTE COUNT DECREASED [None]
  - MALAISE [None]
  - OPPORTUNISTIC INFECTION [None]
  - PNEUMOCYSTIS JIROVECI PNEUMONIA [None]
  - PYREXIA [None]
